FAERS Safety Report 8591427-5 (Version None)
Quarter: 2012Q3

REPORT INFORMATION
  Report Type: 
  Country: None (occurrence: None)
  Receive Date: 20120814
  Receipt Date: 20120806
  Transmission Date: 20120928
  Serious: Yes (Other)
  Sender: FDA-Public Use
  Company Number: US-ABBOTT-11P-163-0733683-00

PATIENT
  Sex: Female
  Weight: 62.198 kg

DRUGS (3)
  1. WELCHOL [Concomitant]
     Indication: PRODUCT USED FOR UNKNOWN INDICATION
     Dosage: 2 TABS EVERY MORNING
  2. HUMIRA [Suspect]
     Indication: CROHN'S DISEASE
     Route: 058
     Dates: start: 20050101, end: 20101001
  3. HUMIRA [Suspect]
     Route: 058
     Dates: start: 20101201

REACTIONS (6)
  - ABDOMINAL DISTENSION [None]
  - SMALL INTESTINAL STENOSIS [None]
  - INJECTION SITE URTICARIA [None]
  - INJECTION SITE PAIN [None]
  - INCORRECT DOSE ADMINISTERED [None]
  - SMALL INTESTINAL OBSTRUCTION [None]
